FAERS Safety Report 15292337 (Version 3)
Quarter: 2019Q2

REPORT INFORMATION
  Report Type: Spontaneous
  Country: DE (occurrence: DE)
  Receive Date: 20180818
  Receipt Date: 20190516
  Transmission Date: 20190711
  Serious: Yes (Hospitalization, Other)
  Sender: FDA-Public Use
  Company Number: DE-AUROBINDO-AUR-APL-2018-042476

PATIENT

DRUGS (24)
  1. RISPERIDONE. [Suspect]
     Active Substance: RISPERIDONE
     Indication: PRODUCT USED FOR UNKNOWN INDICATION
     Dosage: 0.5 MG, QD
     Route: 048
     Dates: start: 20180131
  2. FUROSEMID [Concomitant]
     Active Substance: FUROSEMIDE
     Indication: PRODUCT USED FOR UNKNOWN INDICATION
     Dosage: 40 MG, QD
     Route: 048
     Dates: start: 20180203
  3. DOMINAL (PROTHIPENDYL HYDROCHLORIDE) [Suspect]
     Active Substance: PROTHIPENDYL HYDROCHLORIDE
     Indication: PRODUCT USED FOR UNKNOWN INDICATION
     Dosage: 40 MG, QD
     Route: 048
     Dates: start: 20180213, end: 20180228
  4. SIMVASTATIN. [Concomitant]
     Active Substance: SIMVASTATIN
     Indication: PRODUCT USED FOR UNKNOWN INDICATION
     Dosage: 20 MG, QD
     Route: 048
     Dates: start: 20180131
  5. ENALAPRIL [Concomitant]
     Active Substance: ENALAPRIL
     Indication: PRODUCT USED FOR UNKNOWN INDICATION
     Dosage: 5 MG, QD
     Route: 048
     Dates: start: 20180201
  6. AZOPT [Concomitant]
     Active Substance: BRINZOLAMIDE
     Indication: PRODUCT USED FOR UNKNOWN INDICATION
     Dosage: 4 MG, (B.A.W)
     Route: 047
     Dates: start: 20180210
  7. XALATAN [Concomitant]
     Active Substance: LATANOPROST
     Indication: PRODUCT USED FOR UNKNOWN INDICATION
     Dosage: 2 GTT, QD (B.A.W.)
     Route: 065
     Dates: start: 20180210
  8. FUROSEMID [Concomitant]
     Active Substance: FUROSEMIDE
     Dosage: 20 MG, QD (B.A.W.)
     Route: 048
     Dates: start: 20180204
  9. OXAZEPAM. [Concomitant]
     Active Substance: OXAZEPAM
     Indication: PRODUCT USED FOR UNKNOWN INDICATION
     Dosage: 25 - 30 MG
     Route: 048
     Dates: start: 20180131, end: 20180213
  10. OXAZEPAM. [Concomitant]
     Active Substance: OXAZEPAM
     Dosage: 22.5 MG, QD
     Route: 048
     Dates: start: 20180214, end: 20180220
  11. OXAZEPAM. [Concomitant]
     Active Substance: OXAZEPAM
     Dosage: 10 - 5 MG
     Route: 048
  12. RISPERIDONE. [Suspect]
     Active Substance: RISPERIDONE
     Dosage: 0.25 MG, QD
     Route: 048
     Dates: start: 20180307, end: 20180311
  13. OXAZEPAM. [Concomitant]
     Active Substance: OXAZEPAM
     Dosage: 20 - 15 MG
     Route: 048
     Dates: start: 20180221, end: 20180227
  14. SIMVASTATIN. [Concomitant]
     Active Substance: SIMVASTATIN
     Dosage: 20 MG, QD (MIND. SEIT WOCHEN - B.A.W.)
     Route: 048
  15. ENALAPRIL [Concomitant]
     Active Substance: ENALAPRIL
     Dosage: 10 MG, QD (B.A.W.)
     Route: 048
     Dates: start: 20180202
  16. SIMVASTATIN. [Concomitant]
     Active Substance: SIMVASTATIN
     Dosage: MIND. SEIT WOCHEN - B.A.W.
     Route: 048
  17. DOMINAL (PROTHIPENDYL HYDROCHLORIDE) [Suspect]
     Active Substance: PROTHIPENDYL HYDROCHLORIDE
     Dosage: 80 MG, QD (B.A.W.)
     Route: 048
     Dates: start: 20180301
  18. OXAZEPAM. [Concomitant]
     Active Substance: OXAZEPAM
     Dosage: 25 - 30 MG
     Route: 048
  19. RISPERIDONE. [Suspect]
     Active Substance: RISPERIDONE
     Dosage: 1 MG, QD
     Route: 048
     Dates: start: 20180201, end: 20180213
  20. RISPERIDONE. [Suspect]
     Active Substance: RISPERIDONE
     Dosage: 0.5 MG, QD
     Route: 048
     Dates: start: 20180214, end: 20180306
  21. ERGENYL [Suspect]
     Active Substance: VALPROIC ACID
     Indication: PRODUCT USED FOR UNKNOWN INDICATION
     Dosage: 150 MG, QD (BIS AUF WEITERES)
     Route: 048
     Dates: start: 20180303
  22. OXAZEPAM. [Concomitant]
     Active Substance: OXAZEPAM
     Dosage: 12.5 MG, QD
     Route: 048
     Dates: start: 20180228, end: 20180304
  23. OXAZEPAM. [Concomitant]
     Active Substance: OXAZEPAM
     Dosage: 10 - 5 MG
     Route: 048
     Dates: start: 20180305, end: 20180311
  24. OXAZEPAM. [Concomitant]
     Active Substance: OXAZEPAM
     Dosage: 20 - 15 MG
     Route: 048

REACTIONS (1)
  - Pleurothotonus [Recovering/Resolving]

NARRATIVE: CASE EVENT DATE: 20180306
